FAERS Safety Report 24675867 (Version 2)
Quarter: 2024Q4

REPORT INFORMATION
  Report Type: Spontaneous
  Country: CH (occurrence: CH)
  Receive Date: 20241128
  Receipt Date: 20241202
  Transmission Date: 20250115
  Serious: Yes (Hospitalization, Other)
  Sender: TEVA
  Company Number: None

PATIENT
  Age: 85 Year
  Sex: Male
  Weight: 76.6 kg

DRUGS (10)
  1. PANTOPRAZOLE [Suspect]
     Active Substance: PANTOPRAZOLE
     Indication: Product used for unknown indication
     Dosage: SINCE AT LEAST 2020, PANTOPRAZOL MEPHA
     Route: 048
  2. CALCIUM CARBONATE\CHOLECALCIFEROL [Concomitant]
     Active Substance: CALCIUM CARBONATE\CHOLECALCIFEROL
     Indication: Product used for unknown indication
     Dosage: (CALCIUM 500 MG/VITAMIN D 800 I.U.) P.O. 1-1-1-1 START DATE UNKNOWN, SINCE AT LEAST 04.2024
     Route: 048
  3. DUTASTERIDE\TAMSULOSIN [Concomitant]
     Active Substance: DUTASTERIDE\TAMSULOSIN
     Indication: Product used for unknown indication
     Dosage: DUTASTERIDE 0.5 MG, TAMSULOSIN 0.4 MG PER DOSAGE FORM, 1-0-0-0
     Route: 048
     Dates: start: 202312
  4. ATROVENT [Concomitant]
     Active Substance: IPRATROPIUM BROMIDE
     Indication: Product used for unknown indication
     Dosage: 250 ?G INHALED EVERY 8 HOURS (START DATE UNKNOWN).
     Route: 055
  5. DAPAGLIFLOZIN [Concomitant]
     Active Substance: DAPAGLIFLOZIN
     Indication: Product used for unknown indication
     Dosage: 10 MG P.O. 1-0-0-0 (START DATE UNKNOWN)
     Route: 048
  6. VENTOLIN [Concomitant]
     Active Substance: ALBUTEROL SULFATE
     Indication: Product used for unknown indication
     Dosage: 1.25 MG INHALED EVERY 8 HOURS (START DATE UNKNOWN)
     Route: 055
  7. ELIQUIS [Concomitant]
     Active Substance: APIXABAN
     Indication: Product used for unknown indication
     Dosage: 2.5 MG P.O. 1-0-1-0 (START DATE UNKNOWN)
     Route: 048
  8. ATORVASTATIN [Concomitant]
     Active Substance: ATORVASTATIN
     Indication: Product used for unknown indication
     Dosage: 40 MG P.O. 1-0-0-0 (START DATE UNKNOWN)
     Route: 048
  9. NORVASC [Concomitant]
     Active Substance: AMLODIPINE BESYLATE
     Indication: Product used for unknown indication
     Dosage: 5 MG P.O. 1-0-0-0
     Route: 048
  10. ZESTRIL [Concomitant]
     Active Substance: LISINOPRIL
     Indication: Product used for unknown indication
     Dosage: 20 MG P.O. 1-0-0-0
     Route: 048

REACTIONS (2)
  - Hypocalcaemia [Not Recovered/Not Resolved]
  - Hypomagnesaemia [Recovered/Resolved]

NARRATIVE: CASE EVENT DATE: 20240901
